FAERS Safety Report 5602140-8 (Version None)
Quarter: 2008Q1

REPORT INFORMATION
  Report Type: 
  Country: None (occurrence: None)
  Receive Date: 20080125
  Receipt Date: 20080118
  Transmission Date: 20080703
  Serious: Yes (Hospitalization)
  Sender: FDA-Public Use
  Company Number: PHBS2008US01109

PATIENT
  Age: 53 Year
  Sex: Female

DRUGS (9)
  1. BACLOFEN [Suspect]
     Route: 065
  2. FLUOXETINE [Suspect]
     Indication: FATIGUE
     Dosage: 40 MG/D
     Route: 065
  3. FLUOXETINE [Suspect]
     Dosage: 40 MG/D
     Route: 065
  4. MODAFINIL [Suspect]
     Dosage: 200 MG/D
     Route: 065
  5. AMANTADINE HCL [Suspect]
     Dosage: 200 MG/D
     Route: 065
  6. OXYBUTYNIN CHLORIDE [Concomitant]
     Indication: HYPERTONIC BLADDER
     Dosage: 10 MG, TID
  7. INTERFERON BETA [Concomitant]
     Indication: MULTIPLE SCLEROSIS
     Dosage: UNK, Q48H
  8. LEVOTHYROXINE SODIUM [Concomitant]
     Indication: HYPOTHYROIDISM
     Dosage: 88 UG/D
     Route: 065
  9. LEVOTHYROXINE SODIUM [Concomitant]
     Dosage: 88 UG/D
     Route: 065

REACTIONS (14)
  - ABNORMAL DREAMS [None]
  - AFFECT LABILITY [None]
  - CONFUSIONAL STATE [None]
  - CRYING [None]
  - DELIRIUM [None]
  - DELUSION OF GRANDEUR [None]
  - DEPERSONALISATION [None]
  - DIARRHOEA [None]
  - DISORIENTATION [None]
  - DRUG WITHDRAWAL SYNDROME [None]
  - HALLUCINATIONS, MIXED [None]
  - HEADACHE [None]
  - INFLUENZA LIKE ILLNESS [None]
  - PYREXIA [None]
